FAERS Safety Report 4964807-4 (Version None)
Quarter: 2006Q2

REPORT INFORMATION
  Report Type: 
  Country: None (occurrence: None)
  Receive Date: 20060403
  Receipt Date: 20060316
  Transmission Date: 20061013
  Serious: Yes (Disabling)
  Sender: FDA-Public Use
  Company Number: 34247

PATIENT

DRUGS (2)
  1. TOBRADEX [Suspect]
     Indication: EYELID INFECTION
     Route: 047
     Dates: start: 20051123
  2. TIMOLOL MALEATE [Concomitant]

REACTIONS (2)
  - BLINDNESS UNILATERAL [None]
  - EYE DISORDER [None]
